FAERS Safety Report 5939255-0 (Version None)
Quarter: 2008Q4

REPORT INFORMATION
  Report Type: 
  Country: None (occurrence: None)
  Receive Date: 20081103
  Receipt Date: 20081027
  Transmission Date: 20090506
  Serious: Yes (Other)
  Sender: FDA-Public Use
  Company Number: US-JNJCH-2008053126

PATIENT
  Age: 42 Year
  Sex: Male
  Weight: 83.9 kg

DRUGS (1)
  1. ZYRTEC [Suspect]
     Indication: DRUG USE FOR UNKNOWN INDICATION
     Route: 048
     Dates: start: 20081027, end: 20081027

REACTIONS (7)
  - CHEST PAIN [None]
  - DIZZINESS [None]
  - EUPHORIC MOOD [None]
  - HALLUCINATION [None]
  - HYPERHIDROSIS [None]
  - SOMNOLENCE [None]
  - THIRST [None]
